FAERS Safety Report 5679179-X (Version None)
Quarter: 2008Q1

REPORT INFORMATION
  Report Type: 
  Country: None (occurrence: None)
  Receive Date: 20080321
  Receipt Date: 20080311
  Transmission Date: 20080703
  Serious: Yes (Death, Hospitalization)
  Sender: FDA-Public Use
  Company Number: CERZ-1000124

PATIENT
  Age: 3 Year
  Sex: Female
  Weight: 12 kg

DRUGS (4)
  1. CEREZYME [Suspect]
     Indication: GAUCHER'S DISEASE
     Dosage: 1600 U,INTRAVENOUS
     Route: 042
     Dates: start: 20060919, end: 20080205
  2. UNSPECIFIED ANTICONVULSANTS [Concomitant]
  3. UNSPECIFIED ANTI-EMETIC [Concomitant]
  4. UNSPECIFIED ANTACID [Concomitant]

REACTIONS (8)
  - BULBAR PALSY [None]
  - CONVULSION [None]
  - GASTRITIS [None]
  - GASTROOESOPHAGEAL REFLUX DISEASE [None]
  - HAEMATEMESIS [None]
  - LOWER RESPIRATORY TRACT INFECTION [None]
  - NO THERAPEUTIC RESPONSE [None]
  - VOMITING [None]
